FAERS Safety Report 15729813 (Version 2)
Quarter: 2018Q4

REPORT INFORMATION
  Report Type: Report from Study
  Country: ES (occurrence: ES)
  Receive Date: 20181217
  Receipt Date: 20181228
  Transmission Date: 20190205
  Serious: Yes (Hospitalization)
  Sender: FDA-Public Use
  Company Number: ES-PFIZER INC-2018511610

PATIENT
  Age: 39 Year
  Sex: Male
  Weight: 66 kg

DRUGS (4)
  1. SUNITINIB MALATE. [Suspect]
     Active Substance: SUNITINIB MALATE
     Indication: SOFT TISSUE SARCOMA
     Dosage: 37.5 MG, 1X/DAY
     Route: 048
     Dates: start: 20181104, end: 20181125
  2. SUNITINIB MALATE. [Suspect]
     Active Substance: SUNITINIB MALATE
     Indication: BONE SARCOMA
     Dosage: 25 MG, 1X/DAY
     Dates: start: 20181126
  3. BMS-936558 [Suspect]
     Active Substance: NIVOLUMAB
     Indication: SOFT TISSUE SARCOMA
     Dosage: 240 MG, EVERY 2 WEEKS
     Route: 042
     Dates: start: 20181126
  4. BMS-936558 [Suspect]
     Active Substance: NIVOLUMAB
     Indication: BONE SARCOMA

REACTIONS (1)
  - Cellulitis [Recovered/Resolved]

NARRATIVE: CASE EVENT DATE: 20181207
